FAERS Safety Report 6288137-6 (Version None)
Quarter: 2009Q3

REPORT INFORMATION
  Report Type: 
  Country: None (occurrence: None)
  Receive Date: 20090729
  Receipt Date: 20080911
  Transmission Date: 20100115
  Serious: No
  Sender: FDA-Public Use
  Company Number: A0747286A

PATIENT
  Age: 23 Month
  Sex: Male

DRUGS (3)
  1. ZANTAC [Suspect]
     Route: 048
     Dates: start: 20070601, end: 20071101
  2. AMOXICILLIN [Suspect]
     Dosage: 1TSP THREE TIMES PER DAY
     Dates: start: 20080901, end: 20080911
  3. NO CONCURRENT MEDICATION [Concomitant]

REACTIONS (1)
  - URTICARIA [None]
